FAERS Safety Report 10174865 (Version 3)
Quarter: 2014Q4

REPORT INFORMATION
  Report Type: Spontaneous
  Country: US (occurrence: US)
  Receive Date: 20140515
  Receipt Date: 20141024
  Transmission Date: 20150528
  Serious: No
  Sender: FDA-Public Use
  Company Number: US-PFIZER INC-2014131281

PATIENT
  Age: 70 Year
  Sex: Male

DRUGS (2)
  1. BOSULIF [Suspect]
     Active Substance: BOSUTINIB MONOHYDRATE
     Indication: CHRONIC MYELOID LEUKAEMIA
     Dosage: 200 MG, DAILY
     Dates: start: 20140401, end: 201404
  2. BOSULIF [Suspect]
     Active Substance: BOSUTINIB MONOHYDRATE
     Dosage: 500 MG, UNK
     Dates: start: 201404, end: 201410

REACTIONS (5)
  - Fatigue [Unknown]
  - Asthenia [Unknown]
  - Peripheral swelling [Unknown]
  - Eye swelling [Unknown]
  - White blood cell disorder [Unknown]

NARRATIVE: CASE EVENT DATE: 2014
